FAERS Safety Report 18339081 (Version 1)
Quarter: 2020Q4

REPORT INFORMATION
  Report Type: Spontaneous
  Country: US (occurrence: US)
  Receive Date: 20201002
  Receipt Date: 20201002
  Transmission Date: 20210113
  Serious: Yes (Hospitalization)
  Sender: FDA-Public Use
  Company Number: US-KYOWAKIRIN-2020BKK015645

PATIENT

DRUGS (2)
  1. POTELIGEO [Suspect]
     Active Substance: MOGAMULIZUMAB-KPKC
     Indication: ADULT T-CELL LYMPHOMA/LEUKAEMIA
     Dosage: 112 MG OVER AT LEAST 60 MINUTES ON DAYS 1, 8, 15 AND 22 OF SUBSEQUENT 22 CYCLE
     Route: 042
  2. POTELIGEO [Suspect]
     Active Substance: MOGAMULIZUMAB-KPKC
     Indication: HUMAN T-CELL LYMPHOTROPIC VIRUS TYPE I INFECTION

REACTIONS (3)
  - Product use in unapproved indication [Unknown]
  - Hospitalisation [Unknown]
  - Platelet count increased [Unknown]

NARRATIVE: CASE EVENT DATE: 20200924
